FAERS Safety Report 23287402 (Version 1)
Quarter: 2023Q4

REPORT INFORMATION
  Report Type: Spontaneous
  Country: US (occurrence: US)
  Receive Date: 20231212
  Receipt Date: 20231212
  Transmission Date: 20240109
  Serious: No
  Sender: FDA-Public Use
  Company Number: US-STRIDES ARCOLAB LIMITED-2023SP016283

PATIENT
  Age: 7 Month
  Sex: Female

DRUGS (3)
  1. IBUPROFEN [Suspect]
     Active Substance: IBUPROFEN
     Indication: Otitis media acute
     Dosage: UNK
     Route: 065
  2. ACETAMINOPHEN [Concomitant]
     Active Substance: ACETAMINOPHEN
     Indication: Otitis media acute
     Dosage: 5 MILLILITER, EVERY 4 HRS (RECEIVED 5 ML OR 160 MG OF LIQUID ACETAMINOPHEN EVERY 4 HOURS SINCE THE I
     Route: 065
  3. AZITHROMYCIN [Concomitant]
     Active Substance: AZITHROMYCIN
     Indication: Otitis media acute
     Dosage: UNK
     Route: 065

REACTIONS (2)
  - Medication error [Unknown]
  - Off label use [Unknown]
